FAERS Safety Report 5633237-4 (Version None)
Quarter: 2008Q1

REPORT INFORMATION
  Report Type: 
  Country: None (occurrence: None)
  Receive Date: 20080221
  Receipt Date: 20080207
  Transmission Date: 20080703
  Serious: Yes (Other)
  Sender: FDA-Public Use
  Company Number: US-BAYER-200713838BCC

PATIENT
  Age: 80 Year
  Sex: Female
  Weight: 51 kg

DRUGS (12)
  1. PHILLIPS MILK OF MAGNESIA CLASSIC MINT [Suspect]
     Indication: CONSTIPATION
     Route: 048
  2. PHILLIPS MILK OF MAGNESIA CLASSIC MINT [Suspect]
     Route: 048
  3. ACIPHEX [Concomitant]
  4. SENNAGEN [Concomitant]
  5. ATINOL [Concomitant]
  6. LOTENCIN [Concomitant]
  7. HYDRO CHLORIDE [Concomitant]
  8. LOVASTATIN [Concomitant]
  9. TRICOR [Concomitant]
  10. PREMARIN [Concomitant]
  11. DIGITEK [Concomitant]
  12. ECOTRIN [Concomitant]

REACTIONS (4)
  - CONSTIPATION [None]
  - HAEMATOCHEZIA [None]
  - MUSCLE SPASMS [None]
  - RECTAL HAEMORRHAGE [None]
